FAERS Safety Report 5130006-9 (Version None)
Quarter: 2006Q4

REPORT INFORMATION
  Report Type: 
  Country: None (occurrence: None)
  Receive Date: 20061013
  Receipt Date: 20061004
  Transmission Date: 20070319
  Serious: Yes (Hospitalization)
  Sender: FDA-Public Use
  Company Number: 230003M06BEL

PATIENT
  Age: 40 Year
  Sex: Male
  Weight: 81 kg

DRUGS (2)
  1. REBIF [Suspect]
     Indication: RELAPSING-REMITTING MULTIPLE SCLEROSIS
     Dosage: 44 MCG, 3 IN 1 WEEKS, SUBCUTANEOUS
     Route: 058
  2. ASPIRIN [Concomitant]

REACTIONS (3)
  - DEEP VEIN THROMBOSIS [None]
  - FATIGUE [None]
  - PULMONARY EMBOLISM [None]
